FAERS Safety Report 5217661-X (Version None)
Quarter: 2006Q4

REPORT INFORMATION
  Report Type: 
  Country: None (occurrence: None)
  Receive Date: 20061130
  Receipt Date: 20060530
  Transmission Date: 20070319
  Serious: Yes (Other)
  Sender: FDA-Public Use
  Company Number: US200601000170

PATIENT
  Sex: Male
  Weight: 104.3 kg

DRUGS (10)
  1. ZYPREXA [Suspect]
     Indication: SCHIZOPHRENIA
     Dosage: SEE IMAGE
     Route: 048
     Dates: start: 19980101, end: 20000501
  2. ZYPREXA [Suspect]
     Indication: SCHIZOPHRENIA
     Dosage: SEE IMAGE
     Route: 048
     Dates: start: 20000501, end: 20010101
  3. ZYPREXA [Suspect]
     Indication: SCHIZOPHRENIA
     Dosage: SEE IMAGE
     Route: 048
     Dates: start: 20010101, end: 20020201
  4. ZYPREXA [Suspect]
     Indication: SCHIZOPHRENIA
     Dosage: SEE IMAGE
     Route: 048
     Dates: start: 20020201, end: 20020901
  5. ZYPREXA [Suspect]
     Indication: SCHIZOPHRENIA
     Dosage: SEE IMAGE
     Route: 048
     Dates: start: 20020901, end: 20040101
  6. ZOCOR [Concomitant]
  7. BUPROPION HCL [Concomitant]
  8. SERTRALINE [Concomitant]
  9. GLUCOVANCE [Concomitant]
  10. METOPROLOL TARTRATE [Concomitant]

REACTIONS (3)
  - DIABETES MELLITUS [None]
  - GLUCOSE URINE PRESENT [None]
  - WEIGHT INCREASED [None]
